FAERS Safety Report 25826475 (Version 1)
Quarter: 2025Q3

REPORT INFORMATION
  Report Type: Report from Study
  Country: US (occurrence: US)
  Receive Date: 20250920
  Receipt Date: 20250920
  Transmission Date: 20251021
  Serious: Yes (Other)
  Sender: ABBVIE
  Company Number: US-ABBVIE-6464152

PATIENT
  Sex: Male

DRUGS (1)
  1. RINVOQ [Suspect]
     Active Substance: UPADACITINIB
     Indication: Product used for unknown indication
     Route: 048
     Dates: start: 202407

REACTIONS (7)
  - Neck surgery [Not Recovered/Not Resolved]
  - Neuralgia [Unknown]
  - Pain [Unknown]
  - Scratch [Unknown]
  - Haemorrhage [Unknown]
  - Psoriasis [Unknown]
  - Arthralgia [Unknown]
